FAERS Safety Report 7053498-7 (Version None)
Quarter: 2010Q4

REPORT INFORMATION
  Report Type: 
  Country: None (occurrence: None)
  Receive Date: 20101020
  Receipt Date: 20101007
  Transmission Date: 20110411
  Serious: Yes (Hospitalization)
  Sender: FDA-Public Use
  Company Number: IT-ELI_LILLY_AND_COMPANY-IT201010002180

PATIENT
  Sex: Male
  Weight: 85 kg

DRUGS (6)
  1. GEMCITABINE HCL [Suspect]
     Indication: NON-SMALL CELL LUNG CANCER
     Dosage: 2300 MG, UNK
     Dates: start: 20100907
  2. CISPLATIN [Suspect]
     Indication: NON-SMALL CELL LUNG CANCER
     Dosage: 140 MG, UNK
     Dates: start: 20100907
  3. SALMETEROL [Concomitant]
     Dosage: 25 MG, 2/D
  4. TIOTROPIUM BROMIDE [Concomitant]
     Dosage: 18 UG, 2/D
  5. PANTOPRAZOLO [Concomitant]
     Dosage: 20 MG, UNK
  6. METILPREDNISOLONA                  /00049602/ [Concomitant]
     Dosage: 16 MG, UNK

REACTIONS (1)
  - ARTERIAL THROMBOSIS LIMB [None]
